FAERS Safety Report 26193923 (Version 1)
Quarter: 2025Q4

REPORT INFORMATION
  Report Type: Other
  Country: IR (occurrence: IR)
  Receive Date: 20251224
  Receipt Date: 20251224
  Transmission Date: 20260117
  Serious: Yes (Hospitalization, Other)
  Sender: ALVOGEN
  Company Number: IR-ALVOGEN-2025099216

PATIENT
  Sex: Male

DRUGS (10)
  1. DEXAMETHASONE [Suspect]
     Active Substance: DEXAMETHASONE
     Indication: Weight decreased
  2. CANNABIS SATIVA SUBSP. INDICA TOP [Concomitant]
     Active Substance: CANNABIS SATIVA SUBSP. INDICA TOP
     Indication: Product used for unknown indication
  3. ALCOHOL [Concomitant]
     Active Substance: ALCOHOL
     Indication: Product used for unknown indication
     Dosage: LAST USE: 2 YEARS PRIOR TO CURRENT ADMISSION
  4. BUPRENORPHINE [Concomitant]
     Active Substance: BUPRENORPHINE
     Indication: Product used for unknown indication
     Dosage: 1 YEAR PRIOR TO CURRENT ADMISSION
  5. METHADONE [Concomitant]
     Active Substance: METHADONE HYDROCHLORIDE
     Indication: Product used for unknown indication
     Dosage: 80 MG/DAY
  6. CYPROHEPTADINE [Concomitant]
     Active Substance: CYPROHEPTADINE
     Indication: Product used for unknown indication
  7. CANNABIS SATIVA SUBSP. INDICA TOP [Concomitant]
     Active Substance: CANNABIS SATIVA SUBSP. INDICA TOP
     Indication: Product used for unknown indication
  8. ASPIRIN [Concomitant]
     Active Substance: ASPIRIN
     Indication: Surgery
  9. APIXABAN [Concomitant]
     Active Substance: APIXABAN
     Indication: Surgery
  10. MELOXICAM [Concomitant]
     Active Substance: MELOXICAM
     Indication: Surgery

REACTIONS (4)
  - Major depression [Recovering/Resolving]
  - Osteonecrosis [Recovering/Resolving]
  - Intentional product misuse [Unknown]
  - Prescription drug used without a prescription [Unknown]
